FAERS Safety Report 22294778 (Version 2)
Quarter: 2023Q2

REPORT INFORMATION
  Report Type: Spontaneous
  Country: CZ (occurrence: CZ)
  Receive Date: 20230508
  Receipt Date: 20230515
  Transmission Date: 20230721
  Serious: Yes (Death, Life-Threatening, Hospitalization, Disabling, Other)
  Sender: FDA-Public Use
  Company Number: CZ-SA-2023SA096273

PATIENT
  Age: 67 Year
  Sex: Male
  Weight: 98 kg

DRUGS (19)
  1. CLARITHROMYCIN [Interacting]
     Active Substance: CLARITHROMYCIN
     Indication: Antibiotic therapy
     Dosage: 500MG+250ML GLUCOSIS 5% I.V./1 HR (AT 8AM - 8PM)
     Route: 042
     Dates: start: 2021
  2. CLARITHROMYCIN [Interacting]
     Active Substance: CLARITHROMYCIN
     Dosage: UNK
     Route: 065
     Dates: start: 2021
  3. MULTAQ [Interacting]
     Active Substance: DRONEDARONE
     Indication: Atrial fibrillation
     Dosage: 400 MG, BID TABLET
     Route: 048
     Dates: start: 20210518, end: 20210831
  4. MULTAQ [Interacting]
     Active Substance: DRONEDARONE
     Dosage: UNK
     Route: 065
     Dates: start: 20210518
  5. ITRACONAZOLE [Interacting]
     Active Substance: ITRACONAZOLE
     Indication: Antibiotic therapy
     Dosage: 100 MILLIGRAM, BID
     Route: 048
     Dates: start: 2021
  6. ITRACONAZOLE [Interacting]
     Active Substance: ITRACONAZOLE
     Dosage: UNK
     Route: 065
     Dates: start: 2021
  7. THYROSOL [Concomitant]
     Dosage: 10 MG, Q3W (MONDAY, WEDNESDAY, SATURDAY)
     Route: 048
     Dates: start: 2021
  8. Novalgin [Concomitant]
     Dosage: 1 GRAM
     Route: 042
     Dates: start: 2021
  9. RILMENIDINE [Concomitant]
     Active Substance: RILMENIDINE
     Dosage: 1 MILLIGRAM
     Route: 048
     Dates: start: 2021
  10. XARELTO [Concomitant]
     Active Substance: RIVAROXABAN
     Indication: Anticoagulant therapy
     Dosage: UNK (AT HOME)
     Route: 065
     Dates: start: 2021
  11. THEOPHYLLINE [Concomitant]
     Active Substance: THEOPHYLLINE
     Dosage: 125 MILLIGRAM, BID
     Route: 048
     Dates: start: 2021
  12. THEOPHYLLINE [Concomitant]
     Active Substance: THEOPHYLLINE
     Dosage: 250 MILLIGRAM, BID
     Route: 048
     Dates: start: 2021
  13. OMEPRAZOLE [Concomitant]
     Active Substance: OMEPRAZOLE
     Dosage: 40 MG 20 HOURS
     Route: 042
     Dates: start: 2021
  14. PREGLENIX [Concomitant]
     Dosage: 150 MILLIGRAM, BID
     Route: 048
     Dates: start: 2021
  15. INSULIN LISPRO [Concomitant]
     Active Substance: INSULIN LISPRO
     Indication: Type 2 diabetes mellitus
     Dosage: (30-28-0)
     Route: 058
     Dates: start: 2021
  16. INSULIN LISPRO [Concomitant]
     Active Substance: INSULIN LISPRO
     Dosage: 50 SC ACCORDING TO KC
     Route: 058
  17. TRANDOLAPRIL [Concomitant]
     Active Substance: TRANDOLAPRIL
     Dosage: 2 MILLIGRAM
     Route: 048
     Dates: start: 2021
  18. NADROPARIN CALCIUM [Concomitant]
     Active Substance: NADROPARIN CALCIUM
     Indication: Anticoagulant therapy
     Dosage: 0.8 MILLILITER, BID (AT 8AM ? 8PM)
     Route: 058
     Dates: start: 2021
  19. METHIMAZOLE [Concomitant]
     Active Substance: METHIMAZOLE
     Dosage: 10 MG, Q3W (MONDAY, WEDNESDAY, SATURDAY)
     Route: 048
     Dates: start: 2021

REACTIONS (10)
  - Lung disorder [Fatal]
  - Klebsiella infection [Fatal]
  - Respiratory failure [Fatal]
  - Pyrexia [Fatal]
  - Dyspnoea [Fatal]
  - Candida pneumonia [Fatal]
  - Enterobacter pneumonia [Fatal]
  - Pulmonary toxicity [Fatal]
  - Pneumonia klebsiella [Fatal]
  - Drug interaction [Unknown]

NARRATIVE: CASE EVENT DATE: 20210101
